FAERS Safety Report 16445200 (Version 2)
Quarter: 2019Q3

REPORT INFORMATION
  Report Type: Spontaneous
  Country: SE (occurrence: SE)
  Receive Date: 20190618
  Receipt Date: 20190702
  Transmission Date: 20191004
  Serious: Yes (Hospitalization)
  Sender: FDA-Public Use
  Company Number: SE-PFIZER INC-2019254109

PATIENT
  Age: 50 Year
  Sex: Male

DRUGS (1)
  1. ATROPINE SULFATE. [Suspect]
     Active Substance: ATROPINE SULFATE
     Dosage: UNK

REACTIONS (2)
  - Poisoning deliberate [Recovered/Resolved]
  - Anticholinergic syndrome [Recovered/Resolved]
